FAERS Safety Report 18344246 (Version 1)
Quarter: 2020Q4

REPORT INFORMATION
  Report Type: Spontaneous
  Country: US (occurrence: US)
  Receive Date: 20201005
  Receipt Date: 20201005
  Transmission Date: 20210114
  Serious: No
  Sender: FDA-Public Use
  Company Number: US-JNJFOC-20200952944

PATIENT
  Age: 40 Year
  Sex: Female

DRUGS (2)
  1. SPRAVATO [Suspect]
     Active Substance: ESKETAMINE
     Indication: PRODUCT USED FOR UNKNOWN INDICATION
     Dates: start: 20200918, end: 20200918
  2. SPRAVATO [Suspect]
     Active Substance: ESKETAMINE
     Dates: start: 20200925, end: 20200925

REACTIONS (1)
  - Feeling abnormal [Recovering/Resolving]

NARRATIVE: CASE EVENT DATE: 20200929
